FAERS Safety Report 5215670-8 (Version None)
Quarter: 2007Q1

REPORT INFORMATION
  Report Type: 
  Country: None (occurrence: None)
  Receive Date: 20070123
  Receipt Date: 20070117
  Transmission Date: 20070707
  Serious: Yes (Other)
  Sender: FDA-Public Use
  Company Number: US-AVENTIS-200710405US

PATIENT
  Sex: Male
  Weight: 143.79 kg

DRUGS (14)
  1. LOVENOX [Suspect]
     Dosage: DOSE: UNK
  2. LAMICTAL [Suspect]
     Indication: CONVULSION
     Route: 048
  3. FOLIC ACID [Suspect]
     Dosage: DOSE: UNK
  4. LEVOTHYROXINE SODIUM [Suspect]
     Dosage: DOSE: UNK
  5. OXPENTIFYLLINE [Suspect]
     Dosage: DOSE: UNK
  6. ALDENDRONATE SODIUM [Suspect]
     Dosage: DOSE: UNK
  7. LEXAPRO [Suspect]
     Dosage: DOSE: UNK
  8. NEXIUM [Suspect]
     Dosage: DOSE: UNK
  9. GABAPENTIN [Suspect]
     Dosage: DOSE: UNK
  10. FUROSEMIDE [Suspect]
     Dosage: DOSE: UNK
  11. TRAZODONE HCL [Suspect]
     Dosage: DOSE: UNK
  12. CALCIUM SALTS [Suspect]
     Dosage: DOSE: UNK
  13. ASPIRIN [Suspect]
     Dosage: DOSE: UNK
  14. VIT D [Suspect]
     Dosage: DOSE: UNK

REACTIONS (3)
  - CONVULSION [None]
  - DRUG INEFFECTIVE [None]
  - DRUG INTERACTION [None]
